FAERS Safety Report 17010717 (Version 1)
Quarter: 2019Q4

REPORT INFORMATION
  Report Type: Spontaneous
  Country: US (occurrence: US)
  Receive Date: 20191107
  Receipt Date: 20191107
  Transmission Date: 20200122
  Serious: Yes (Other)
  Sender: FDA-Public Use
  Company Number: None

PATIENT
  Age: 70 Year
  Sex: Female
  Weight: 92.25 kg

DRUGS (5)
  1. HYDROCOD/ACE [Concomitant]
  2. MELATONIN [Concomitant]
     Active Substance: MELATONIN
  3. METOPROLOL. [Concomitant]
     Active Substance: METOPROLOL
  4. BABY ASPIRIN [Concomitant]
     Active Substance: ASPIRIN
  5. AIMOVIG [Suspect]
     Active Substance: ERENUMAB-AOOE
     Indication: MIGRAINE
     Dosage: ?          OTHER FREQUENCY:MONTHLY;?
     Route: 030

REACTIONS (4)
  - Ligament sprain [None]
  - Fall [None]
  - Migraine [None]
  - Muscular weakness [None]

NARRATIVE: CASE EVENT DATE: 20191102
